FAERS Safety Report 20157847 (Version 1)
Quarter: 2021Q4

REPORT INFORMATION
  Report Type: Spontaneous
  Country: US (occurrence: US)
  Receive Date: 20211207
  Receipt Date: 20211207
  Transmission Date: 20220303
  Serious: No
  Sender: FDA-Public Use
  Company Number: US-ARBOR PHARMACEUTICALS, LLC-US-2021ARB001087

PATIENT
  Sex: Male

DRUGS (2)
  1. ZENZEDI [Suspect]
     Active Substance: DEXTROAMPHETAMINE SULFATE
     Indication: Product used for unknown indication
     Dosage: UNK
  2. DEXTROAMPHETAMINE                  /00016601/ [Concomitant]
     Indication: Product used for unknown indication
     Dosage: UNK

REACTIONS (1)
  - Product dose omission issue [Unknown]
